FAERS Safety Report 9799833 (Version 2)
Quarter: 2014Q1

REPORT INFORMATION
  Report Type: Spontaneous
  Country: JP (occurrence: JP)
  Receive Date: 20140106
  Receipt Date: 20140106
  Transmission Date: 20141002
  Serious: Yes (Life-Threatening, Hospitalization)
  Sender: FDA-Public Use
  Company Number: JP-BAYER-2013-138237

PATIENT
  Age: 68 Year
  Sex: Male
  Weight: 62.13 kg

DRUGS (12)
  1. BAYASPIRIN [Suspect]
     Indication: STENT PLACEMENT
     Dosage: DAILY DOSE 100 MG
     Route: 048
  2. FLOMOX [Suspect]
     Indication: NASOPHARYNGITIS
     Dosage: 100 MG, TID
     Route: 048
     Dates: start: 20131022, end: 20131027
  3. METFORMIN HYDROCHLORIDE [Suspect]
     Indication: DIABETES MELLITUS
     Dosage: 250 MG, QD
     Route: 048
     Dates: end: 20131027
  4. VALTREX [Suspect]
     Indication: VARICELLA
     Dosage: 1000 MG, TID
     Route: 048
     Dates: start: 20131023, end: 20131027
  5. LOXOPROFEN [Suspect]
     Indication: ANTIPYRESIS
     Dosage: 60 MG, PRN
     Route: 048
     Dates: start: 20131022, end: 20131027
  6. AMLODIPINE [Suspect]
     Indication: HYPERTENSION
     Dosage: 2.5 MG, QD
     Route: 048
     Dates: end: 20131027
  7. PLAVIX [Suspect]
     Indication: PROPHYLAXIS
     Dosage: 75 MG, QD
     Route: 048
     Dates: end: 20131027
  8. PARIET [Suspect]
     Indication: PROPHYLAXIS AGAINST GASTROINTESTINAL ULCER
     Dosage: 10 MG, QD
     Route: 048
     Dates: end: 20131027
  9. ATORVASTATIN [Suspect]
     Indication: HYPERLIPIDAEMIA
     Dosage: 5 MG, QD
     Route: 048
     Dates: end: 20131027
  10. MICARDIS [Suspect]
     Indication: HYPERTENSION
     Dosage: 40 MG, QD
     Route: 048
     Dates: end: 20131027
  11. CALONAL [Concomitant]
     Dosage: UNK
     Route: 048
     Dates: start: 20131021, end: 20131027
  12. LOKIFLAN [Concomitant]

REACTIONS (8)
  - Liver disorder [Recovering/Resolving]
  - Hyponatraemia [Recovering/Resolving]
  - Malnutrition [Recovering/Resolving]
  - Malaise [Recovering/Resolving]
  - Rash [Recovering/Resolving]
  - Jaundice [Recovering/Resolving]
  - Lymphadenopathy [Recovering/Resolving]
  - Pyrexia [Recovering/Resolving]
